FAERS Safety Report 8110496-X (Version None)
Quarter: 2012Q1

REPORT INFORMATION
  Report Type: 
  Country: None (occurrence: None)
  Receive Date: 20120202
  Receipt Date: 20120124
  Transmission Date: 20120608
  Serious: Yes (Other)
  Sender: FDA-Public Use
  Company Number: US-ASTRAZENECA-2012SE05201

PATIENT
  Age: 51 Year
  Sex: Female

DRUGS (2)
  1. PEPCID [Concomitant]
  2. NEXIUM [Suspect]
     Dosage: WITH A TOTAL DAILY DOSE OF 40 MG.
     Route: 048

REACTIONS (3)
  - THROAT CANCER [None]
  - MUCOSAL INFLAMMATION [None]
  - BLISTER [None]
